FAERS Safety Report 9531169 (Version 2)
Quarter: 2013Q4

REPORT INFORMATION
  Report Type: Report from Study
  Country: US (occurrence: US)
  Receive Date: 20130918
  Receipt Date: 20131209
  Transmission Date: 20140711
  Serious: Yes (Death)
  Sender: FDA-Public Use
  Company Number: PHEH2013US019523

PATIENT
  Age: 14 Year
  Sex: Male

DRUGS (1)
  1. TOBI [Suspect]
     Indication: CYSTIC FIBROSIS
     Dosage: 1 DF, BID (TWICE DAILY FOR A CYCLE OF 28 DAYS ON AND 28 DAY OFF)

REACTIONS (1)
  - Death [Fatal]
